FAERS Safety Report 19862444 (Version 1)
Quarter: 2021Q3

REPORT INFORMATION
  Report Type: Report from Study
  Country: DE (occurrence: DE)
  Receive Date: 20210921
  Receipt Date: 20210921
  Transmission Date: 20211014
  Serious: Yes (Other)
  Sender: FDA-Public Use
  Company Number: DE-MYLANLABS-2021M1063176

PATIENT
  Age: 71 Year
  Sex: Female
  Weight: 56 kg

DRUGS (8)
  1. SELEN                              /00075001/ [Concomitant]
     Active Substance: SELENIUM
     Dosage: 200 MICROGRAM, QD
     Route: 048
     Dates: start: 2015
  2. PANTOPRAZOL                        /01263201/ [Concomitant]
     Active Substance: PANTOPRAZOLE
     Dosage: 20 MILLIGRAM
     Route: 048
     Dates: start: 2015
  3. CAPECITABINE. [Suspect]
     Active Substance: CAPECITABINE
     Indication: HER2 NEGATIVE BREAST CANCER
     Dosage: 2000 MILLIGRAM
     Route: 048
     Dates: start: 20201016
  4. BEVACIZUMAB. [Suspect]
     Active Substance: BEVACIZUMAB
     Indication: HER2 NEGATIVE BREAST CANCER
     Dosage: 15 MILLIGRAM
     Route: 042
     Dates: start: 20201016
  5. KALINOR                            /00031402/ [Concomitant]
     Active Substance: POTASSIUM CHLORIDE
     Dosage: UNK
     Route: 048
     Dates: start: 2015
  6. ASPIRIN. [Concomitant]
     Active Substance: ASPIRIN
     Dosage: 100 MILLIGRAM, QD
     Route: 048
     Dates: start: 2015
  7. DEKRISTOL [Concomitant]
     Active Substance: CHOLECALCIFEROL
     Dosage: 999 INTERNATIONAL UNIT, QW
     Route: 048
     Dates: start: 2015
  8. ZINK                               /00156501/ [Concomitant]
     Active Substance: ZINC
     Dosage: 20 MILLIGRAM, QD
     Route: 048
     Dates: start: 2015

REACTIONS (4)
  - Hypertension [Unknown]
  - Fatigue [Unknown]
  - Visual impairment [Unknown]
  - Palmar-plantar erythrodysaesthesia syndrome [Unknown]

NARRATIVE: CASE EVENT DATE: 202011
